FAERS Safety Report 12907947 (Version 1)
Quarter: 2016Q4

REPORT INFORMATION
  Report Type: Spontaneous
  Country: US (occurrence: US)
  Receive Date: 20161103
  Receipt Date: 20161103
  Transmission Date: 20170207
  Serious: Yes (Other)
  Sender: FDA-Public Use
  Company Number: US-TEVA-709660USA

PATIENT
  Age: 53 Year
  Sex: Male
  Weight: 70.37 kg

DRUGS (2)
  1. MODAFINIL. [Suspect]
     Active Substance: MODAFINIL
     Indication: DEPRESSION
  2. MODAFINIL. [Suspect]
     Active Substance: MODAFINIL
     Indication: AFFECTIVE DISORDER
     Dosage: 200 MILLIGRAM DAILY;
     Dates: start: 201602, end: 201609

REACTIONS (2)
  - Arterial bypass operation [Recovered/Resolved]
  - Off label use [Unknown]

NARRATIVE: CASE EVENT DATE: 20160916
